FAERS Safety Report 18549055 (Version 2)
Quarter: 2020Q4

REPORT INFORMATION
  Report Type: Spontaneous
  Country: AU (occurrence: AU)
  Receive Date: 20201126
  Receipt Date: 20201204
  Transmission Date: 20210114
  Serious: Yes (Other)
  Sender: FDA-Public Use
  Company Number: AU-STRIDES ARCOLAB LIMITED-2020SP014538

PATIENT
  Age: 86 Year
  Sex: Male
  Weight: 99 kg

DRUGS (4)
  1. RIFAMPIN. [Suspect]
     Active Substance: RIFAMPIN
     Dosage: 300 MILLIGRAM, DAILY
     Route: 048
  2. CLARITHROMYCIN. [Suspect]
     Active Substance: CLARITHROMYCIN
     Indication: MYCOBACTERIUM ULCERANS INFECTION
     Dosage: 5.1 MILLIGRAM/KILOGRAM
     Route: 048
  3. CLARITHROMYCIN. [Suspect]
     Active Substance: CLARITHROMYCIN
     Dosage: 250 MILLIGRAM, BID
     Route: 048
  4. RIFAMPIN. [Suspect]
     Active Substance: RIFAMPIN
     Indication: MYCOBACTERIUM ULCERANS INFECTION
     Dosage: 3.0 MILLIGRAM/KILOGRAM
     Route: 048

REACTIONS (4)
  - Disease recurrence [Unknown]
  - Hepatic cirrhosis [Unknown]
  - Treatment failure [Unknown]
  - Paradoxical drug reaction [Unknown]
